FAERS Safety Report 9603030 (Version 1)
Quarter: 2013Q4

REPORT INFORMATION
  Report Type: Spontaneous
  Country: US (occurrence: US)
  Receive Date: 20131007
  Receipt Date: 20131007
  Transmission Date: 20140711
  Serious: Yes (Hospitalization, Other)
  Sender: FDA-Public Use
  Company Number: US-009507513-1309USA013882

PATIENT
  Sex: Female

DRUGS (8)
  1. PROVENTIL [Suspect]
     Route: 055
  2. THEOPHYLLINE [Suspect]
  3. ADVAIR [Suspect]
     Indication: ASTHMA
     Dosage: 1 PUFF, BID (ADVAIR HFA-CFC FREE INHALER)
     Route: 055
     Dates: start: 200307, end: 200309
  4. ADVAIR [Suspect]
     Indication: ASTHMA
     Dosage: 1 PUFF, BID (ADVAIR MULTI DOSE POWDER INHALER))
     Route: 055
     Dates: start: 200309
  5. VENTOLIN (ALBUTEROL SULFATE) [Suspect]
     Indication: ASTHMA
     Route: 055
  6. PROCATEROL HYDROCHLORIDE [Concomitant]
  7. SALBUTEROL [Concomitant]
  8. CORTICOSTEROIDS (UNSPECIFIED) [Concomitant]

REACTIONS (8)
  - Respiratory failure [Recovered/Resolved]
  - Memory impairment [Recovered/Resolved]
  - Depression [Recovered/Resolved]
  - Asthma [Recovered/Resolved]
  - Syncope [Recovered/Resolved]
  - Endotracheal intubation [Recovered/Resolved]
  - Drug ineffective [Recovered/Resolved]
  - Chest discomfort [Recovered/Resolved]
